FAERS Safety Report 11908044 (Version 4)
Quarter: 2016Q1

REPORT INFORMATION
  Report Type: Spontaneous
  Country: US (occurrence: US)
  Receive Date: 20160111
  Receipt Date: 20160224
  Transmission Date: 20160526
  Serious: Yes (Death, Hospitalization)
  Sender: FDA-Public Use
  Company Number: US-JNJFOC-20160106665

PATIENT
  Age: 66 Year
  Sex: Female
  Weight: 61.24 kg

DRUGS (4)
  1. REMICADE [Suspect]
     Active Substance: INFLIXIMAB
     Indication: CROHN^S DISEASE
     Route: 042
     Dates: start: 201509
  2. IRON [Concomitant]
     Active Substance: IRON
     Indication: ANAEMIA
     Route: 065
  3. IMURAN [Concomitant]
     Active Substance: AZATHIOPRINE
     Indication: CROHN^S DISEASE
     Route: 065
     Dates: start: 2015
  4. CYANOCOBALAMINE [Concomitant]
     Active Substance: CYANOCOBALAMIN
     Route: 048

REACTIONS (7)
  - Intestinal obstruction [Unknown]
  - Large intestine perforation [Unknown]
  - Sepsis [Fatal]
  - Malaise [Unknown]
  - Drug ineffective [Unknown]
  - Crohn^s disease [Fatal]
  - Weight decreased [Unknown]

NARRATIVE: CASE EVENT DATE: 2015
